FAERS Safety Report 5625642-7 (Version None)
Quarter: 2008Q1

REPORT INFORMATION
  Report Type: 
  Country: None (occurrence: None)
  Receive Date: 20080207
  Receipt Date: 20080207
  Transmission Date: 20080703
  Serious: No
  Sender: FDA-Public Use
  Company Number: None

PATIENT
  Age: 68 Year
  Sex: Female
  Weight: 77.1115 kg

DRUGS (1)
  1. LEVAQUIN [Suspect]
     Indication: UPPER RESPIRATORY TRACT INFECTION
     Dosage: 500 MG 1 QD PO
     Route: 048
     Dates: start: 20061225, end: 20070103

REACTIONS (9)
  - ACTIVITIES OF DAILY LIVING IMPAIRED [None]
  - ARTHRALGIA [None]
  - CARTILAGE INJURY [None]
  - GAIT DISTURBANCE [None]
  - JOINT INJURY [None]
  - JOINT SWELLING [None]
  - MALAISE [None]
  - PAIN [None]
  - TENDONITIS [None]
